FAERS Safety Report 6607221-8 (Version None)
Quarter: 2010Q1

REPORT INFORMATION
  Report Type: 
  Country: None (occurrence: None)
  Receive Date: 20100227
  Receipt Date: 20100219
  Transmission Date: 20100710
  Serious: Yes (Hospitalization)
  Sender: FDA-Public Use
  Company Number: FR-JNJFOC-20100206818

PATIENT
  Sex: Male

DRUGS (8)
  1. DURAGESIC-100 [Suspect]
     Indication: DRUG USE FOR UNKNOWN INDICATION
     Route: 062
     Dates: end: 20100116
  2. DURAGESIC-100 [Suspect]
     Route: 062
     Dates: end: 20100116
  3. SKENAN [Suspect]
     Indication: DRUG USE FOR UNKNOWN INDICATION
     Route: 048
     Dates: start: 20100117, end: 20100118
  4. MORPHINE RENAUDIN [Suspect]
     Indication: DRUG USE FOR UNKNOWN INDICATION
     Route: 042
     Dates: end: 20100116
  5. KARDEGIC [Concomitant]
     Indication: DRUG USE FOR UNKNOWN INDICATION
     Route: 048
     Dates: end: 20100120
  6. LASILIX [Concomitant]
     Indication: DRUG USE FOR UNKNOWN INDICATION
     Route: 048
     Dates: end: 20100119
  7. PARACETAMOL [Concomitant]
     Indication: DRUG USE FOR UNKNOWN INDICATION
     Route: 048
     Dates: start: 20091230, end: 20100120
  8. VASTAREL [Concomitant]
     Indication: DRUG USE FOR UNKNOWN INDICATION
     Route: 048
     Dates: end: 20100116

REACTIONS (9)
  - BRADYPNOEA [None]
  - CONFUSIONAL STATE [None]
  - HYPERHIDROSIS [None]
  - HYPOTENSION [None]
  - MIOSIS [None]
  - OVERDOSE [None]
  - RENAL FAILURE [None]
  - SUBILEUS [None]
  - TACHYCARDIA [None]
